FAERS Safety Report 14726737 (Version 1)
Quarter: 2018Q2

REPORT INFORMATION
  Report Type: Spontaneous
  Country: RO (occurrence: RO)
  Receive Date: 20180406
  Receipt Date: 20180406
  Transmission Date: 20180711
  Serious: Yes (Other)
  Sender: FDA-Public Use
  Company Number: PHHY2018RO057140

PATIENT
  Age: 38 Year
  Sex: Female
  Weight: 68 kg

DRUGS (7)
  1. DOCETAXEL. [Concomitant]
     Active Substance: DOCETAXEL
     Indication: BREAST CANCER
     Dosage: 100 MG, 21D
     Route: 042
     Dates: start: 20180321
  2. MEROPENEM. [Concomitant]
     Active Substance: MEROPENEM
     Indication: FEBRILE NEUTROPENIA
     Dosage: 1000 MG, Q12H
     Route: 042
     Dates: start: 20180326
  3. PERFALGAN [Concomitant]
     Active Substance: ACETAMINOPHEN
     Indication: FEBRILE NEUTROPENIA
     Dosage: 500 MG, QD
     Route: 042
     Dates: start: 20180326
  4. EPIRUBICINA [Concomitant]
     Active Substance: EPIRUBICIN
     Indication: PRODUCT USED FOR UNKNOWN INDICATION
     Dosage: 100 MG, 21D
     Route: 042
     Dates: start: 20180321
  5. NOSPA [Concomitant]
     Indication: FEBRILE NEUTROPENIA
     Dosage: 80 MG, Q12H
     Route: 042
     Dates: start: 20180326
  6. ZARZIO [Suspect]
     Active Substance: FILGRASTIM
     Indication: FEBRILE NEUTROPENIA
     Dosage: 30000 IU, QD
     Route: 058
     Dates: start: 20180322, end: 20180327
  7. DEXAMETHASONE. [Concomitant]
     Active Substance: DEXAMETHASONE
     Indication: FEBRILE NEUTROPENIA
     Dosage: 8 MG, Q12H
     Route: 042
     Dates: start: 20180326

REACTIONS (5)
  - Abdominal pain [Recovered/Resolved]
  - Cytopenia [Recovered/Resolved]
  - Pyrexia [Recovered/Resolved]
  - Chills [Recovered/Resolved]
  - Diarrhoea [Recovered/Resolved]

NARRATIVE: CASE EVENT DATE: 20180325
